FAERS Safety Report 18685081 (Version 2)
Quarter: 2021Q1

REPORT INFORMATION
  Report Type: Spontaneous
  Country: US (occurrence: US)
  Receive Date: 20201230
  Receipt Date: 20210104
  Transmission Date: 20210419
  Serious: No
  Sender: FDA-Public Use
  Company Number: US-PFIZER INC-2020513257

PATIENT
  Age: 25 Year
  Sex: Female
  Weight: 61.23 kg

DRUGS (1)
  1. DOXYCYCLINE HYCLATE. [Suspect]
     Active Substance: DOXYCYCLINE HYCLATE
     Indication: SINUSITIS
     Dosage: UNK

REACTIONS (3)
  - Rash [Unknown]
  - Eye swelling [Unknown]
  - Mouth swelling [Unknown]

NARRATIVE: CASE EVENT DATE: 2019
